FAERS Safety Report 4305861-2 (Version None)
Quarter: 2004Q1

REPORT INFORMATION
  Report Type: 
  Country: None (occurrence: None)
  Receive Date: 20040225
  Receipt Date: 20040211
  Transmission Date: 20041129
  Serious: Yes (Life-Threatening)
  Sender: FDA-Public Use
  Company Number: 2004-BP-00994AU

PATIENT
  Age: 95 Year
  Sex: Male

DRUGS (6)
  1. ASASANTIN SR (KAR) [Suspect]
     Dosage: 1 DOSE DAILY, PO
     Route: 048
     Dates: start: 20030417
  2. ASTRIX (ACETYLSALICYCLIC ACID) (KA) [Suspect]
     Dosage: 100 MG (100 MG,100MG DAILY), PO
     Route: 048
     Dates: start: 20030417
  3. MONOPLUS (MONOPLUS) (TA) [Suspect]
     Dosage: 1 DOSE DAILY (STRENGTH 25/12.5MG), PO
     Route: 048
     Dates: start: 20030417, end: 20030422
  4. GENTAMICIN (SULPHATE (AMV)) [Suspect]
     Dosage: 180 MG (180MG DAILY), IV
     Route: 042
     Dates: start: 20030419
  5. TRIMETHOPRIM (TA) [Suspect]
     Dosage: 300 MG (300 MG,300MG DAILY), PO
     Route: 048
     Dates: start: 20030419
  6. HEPARIN SODIUM (AM) [Suspect]
     Dosage: 10 U (10 U DAILY)
     Dates: start: 20030417

REACTIONS (2)
  - RENAL FAILURE ACUTE [None]
  - VOMITING [None]
